FAERS Safety Report 15673587 (Version 2)
Quarter: 2018Q4

REPORT INFORMATION
  Report Type: Spontaneous
  Country: US (occurrence: US)
  Receive Date: 20181129
  Receipt Date: 20181130
  Transmission Date: 20190205
  Serious: No
  Sender: FDA-Public Use
  Company Number: US-PFIZER INC-2018478497

PATIENT
  Sex: Female

DRUGS (1)
  1. CHANTIX [Suspect]
     Active Substance: VARENICLINE TARTRATE
     Indication: SMOKING CESSATION THERAPY
     Dosage: 0.5 MG, TWICE A DAY, (CUT THE 1MG IN HALF AND TAKE HALF IN THE MORNING AND HALF IN THE EVENING)

REACTIONS (3)
  - Headache [Unknown]
  - Product prescribing error [Unknown]
  - Anxiety [Unknown]
